FAERS Safety Report 16740676 (Version 1)
Quarter: 2019Q3

REPORT INFORMATION
  Report Type: Report from Study
  Country: US (occurrence: US)
  Receive Date: 20190826
  Receipt Date: 20190826
  Transmission Date: 20191005
  Serious: Yes (Other)
  Sender: FDA-Public Use
  Company Number: US-JNJFOC-20190828595

PATIENT
  Sex: Male

DRUGS (16)
  1. IMBRUVICA [Suspect]
     Active Substance: IBRUTINIB
     Indication: WALDENSTROM^S MACROGLOBULINAEMIA
     Dosage: 420 MG, QD
     Route: 048
     Dates: start: 20180405
  2. DOXYCYCLINE. [Concomitant]
     Active Substance: DOXYCYCLINE
  3. ALLOPURINOL. [Concomitant]
     Active Substance: ALLOPURINOL
  4. RAMIPRIL. [Concomitant]
     Active Substance: RAMIPRIL
  5. CIPROFLOXACIN. [Concomitant]
     Active Substance: CIPROFLOXACIN
  6. BICALUTAMIDE. [Concomitant]
     Active Substance: BICALUTAMIDE
  7. METOPROLOL SUCCINATE. [Concomitant]
     Active Substance: METOPROLOL SUCCINATE
  8. PANTOPRAZOLE [Concomitant]
     Active Substance: PANTOPRAZOLE
  9. TRAMADOL HYDROCHLORIDE. [Concomitant]
     Active Substance: TRAMADOL HYDROCHLORIDE
  10. MYRBETRIQ [Concomitant]
     Active Substance: MIRABEGRON
  11. FERROUS SULFATE. [Concomitant]
     Active Substance: FERROUS SULFATE
  12. ELIQUIS [Concomitant]
     Active Substance: APIXABAN
  13. CEPHALEXIN                         /00145501/ [Concomitant]
     Active Substance: CEPHALEXIN
  14. TAMSULOSIN [Concomitant]
     Active Substance: TAMSULOSIN
  15. FUROSEMIDE. [Concomitant]
     Active Substance: FUROSEMIDE
  16. SOTALOL. [Concomitant]
     Active Substance: SOTALOL

REACTIONS (2)
  - Arthropod sting [Unknown]
  - Encephalitis [Unknown]

NARRATIVE: CASE EVENT DATE: 2019
